FAERS Safety Report 5630084-4 (Version None)
Quarter: 2008Q1

REPORT INFORMATION
  Report Type: 
  Country: None (occurrence: None)
  Receive Date: 20080218
  Receipt Date: 20080208
  Transmission Date: 20080703
  Serious: Yes (Other)
  Sender: FDA-Public Use
  Company Number: PHHY2008BR01707

PATIENT
  Age: 71 Year
  Sex: Female
  Weight: 60 kg

DRUGS (9)
  1. HYDROXYCHLOROQUINE SULFATE [Concomitant]
     Indication: PANIC ATTACK
     Dosage: 0.5 DF, QD
     Route: 048
  2. FRONTAL [Concomitant]
     Indication: PANIC ATTACK
     Dosage: 1 TABLET MORNING AND NIGHT
     Route: 048
  3. REMERON [Concomitant]
     Indication: DEPRESSION
     Dosage: 15 MG, 1 TABLET/NIGHT
  4. LEXAPRO [Concomitant]
     Dosage: 10 MG, QD
  5. FOSAMAX [Concomitant]
     Indication: OSTEOPOROSIS
     Dosage: 70 MG, 1 TABLET/8DAYS
  6. FORASEQ [Suspect]
     Indication: DYSPNOEA
     Dosage: 1 DF, TID
     Dates: start: 20070201
  7. FORASEQ [Suspect]
     Dosage: 1 DF, QD
  8. FORASEQ [Suspect]
     Dosage: 1 DF, BID
  9. TRILEPTAL [Suspect]
     Indication: PAIN IN EXTREMITY
     Dosage: 300 MG, 1 TABLET/DAY
     Route: 048
     Dates: start: 20080115, end: 20080116

REACTIONS (9)
  - DEPRESSION [None]
  - DYSPNOEA [None]
  - FEELING ABNORMAL [None]
  - GENERALISED ERYTHEMA [None]
  - INSOMNIA [None]
  - PAIN IN EXTREMITY [None]
  - PYREXIA [None]
  - RETCHING [None]
  - WEIGHT INCREASED [None]
